FAERS Safety Report 17655356 (Version 2)
Quarter: 2020Q2

REPORT INFORMATION
  Report Type: Spontaneous
  Country: US (occurrence: US)
  Receive Date: 20200410
  Receipt Date: 20200424
  Transmission Date: 20200713
  Serious: Yes (Hospitalization, Other)
  Sender: FDA-Public Use
  Company Number: US-PFIZER INC-2020146474

PATIENT
  Sex: Female

DRUGS (3)
  1. PACLITAXEL. [Suspect]
     Active Substance: PACLITAXEL
     Indication: UTERINE CANCER
     Dosage: UNK UNK, CYCLIC (EVERY 21 DAYS)
     Route: 042
  2. CARBOPLATIN. [Suspect]
     Active Substance: CARBOPLATIN
     Indication: UTERINE CANCER
     Dosage: UNK UNK, CYCLIC (EVERY 21 DAYS)
     Route: 042
  3. ZOLEDRONIC ACID [Concomitant]
     Active Substance: ZOLEDRONIC ACID
     Indication: BONE DISORDER
     Dosage: 4 MG, (EVERY 4 WEEKS)
     Route: 042

REACTIONS (6)
  - Facial paralysis [Recovered/Resolved]
  - Fall [Unknown]
  - Dehydration [Unknown]
  - Muscular weakness [Unknown]
  - Acute kidney injury [Unknown]
  - Peripheral motor neuropathy [Not Recovered/Not Resolved]
